APPROVED DRUG PRODUCT: ELETRIPTAN HYDROBROMIDE
Active Ingredient: ELETRIPTAN HYDROBROMIDE
Strength: EQ 20MG BASE
Dosage Form/Route: TABLET;ORAL
Application: A210708 | Product #001 | TE Code: AB
Applicant: AUROBINDO PHARMA LTD
Approved: Jan 15, 2019 | RLD: No | RS: No | Type: RX